FAERS Safety Report 14715024 (Version 2)
Quarter: 2018Q2

REPORT INFORMATION
  Report Type: Spontaneous
  Country: JP (occurrence: JP)
  Receive Date: 20180404
  Receipt Date: 20180404
  Transmission Date: 20180711
  Serious: Yes (Other)
  Sender: FDA-Public Use
  Company Number: JP-PFIZER INC-2018136336

PATIENT

DRUGS (1)
  1. MEROPEN [Suspect]
     Active Substance: MEROPENEM
     Indication: UROSEPSIS
     Dosage: UNK
     Route: 041

REACTIONS (3)
  - Acute kidney injury [Recovered/Resolved]
  - Urine output increased [Recovered/Resolved]
  - Blood potassium increased [Recovered/Resolved]
